FAERS Safety Report 6739780-9 (Version None)
Quarter: 2010Q2

REPORT INFORMATION
  Report Type: 
  Country: None (occurrence: None)
  Receive Date: 20100525
  Receipt Date: 20100518
  Transmission Date: 20101027
  Serious: Yes (Other)
  Sender: FDA-Public Use
  Company Number: JP-BRISTOL-MYERS SQUIBB COMPANY-15116189

PATIENT
  Age: 90 Year
  Sex: Male
  Weight: 46 kg

DRUGS (4)
  1. AVAPRO [Suspect]
     Indication: HYPERTENSION
     Dosage: 4TH WK-12NOV09,12TH WK-26NOV09
     Route: 048
     Dates: start: 20091014
  2. LIPITOR [Concomitant]
     Route: 048
     Dates: start: 20041124
  3. FERROMIA [Concomitant]
     Route: 048
     Dates: start: 20071004
  4. CANDESARTAN CILEXETIL [Concomitant]

REACTIONS (2)
  - BREAST MASS [None]
  - NIPPLE SWELLING [None]
